FAERS Safety Report 20113171 (Version 1)
Quarter: 2021Q4

REPORT INFORMATION
  Report Type: Spontaneous
  Country: US (occurrence: None)
  Receive Date: 20211124
  Receipt Date: 20211124
  Transmission Date: 20220303
  Serious: Yes (Hospitalization)
  Sender: FDA-Public Use
  Company Number: None

PATIENT
  Age: 67 Year
  Sex: Female
  Weight: 76.95 kg

DRUGS (5)
  1. CAPECITABINE [Suspect]
     Active Substance: CAPECITABINE
     Indication: Gallbladder cancer
     Dosage: OTHER FREQUENCY : AM,1GMPMX14/21DAYS;?
     Route: 048
     Dates: start: 20210621
  2. LUMIGAN [Concomitant]
     Active Substance: BIMATOPROST
  3. TRAMADOL [Concomitant]
     Active Substance: TRAMADOL
  4. FAMOTIDINE [Concomitant]
     Active Substance: FAMOTIDINE
  5. ELIQUIS [Concomitant]
     Active Substance: APIXABAN

REACTIONS (1)
  - Hospitalisation [None]

NARRATIVE: CASE EVENT DATE: 20211124
